FAERS Safety Report 7106156-4 (Version None)
Quarter: 2010Q4

REPORT INFORMATION
  Report Type: 
  Country: None (occurrence: None)
  Receive Date: 20101116
  Receipt Date: 20101108
  Transmission Date: 20110411
  Serious: Yes (Hospitalization, Other)
  Sender: FDA-Public Use
  Company Number: US-ABBOTT-10P-163-0684208-00

PATIENT
  Sex: Female
  Weight: 54.48 kg

DRUGS (2)
  1. SYNTHROID [Suspect]
     Indication: THYROID FUNCTION TEST ABNORMAL
     Dates: start: 20030101
  2. SYNTHROID [Suspect]
     Indication: AUTOIMMUNE THYROIDITIS

REACTIONS (10)
  - ABDOMINAL MASS [None]
  - ABDOMINAL PAIN UPPER [None]
  - BLOOD IRON DECREASED [None]
  - COELIAC DISEASE [None]
  - DEPRESSION [None]
  - FATIGUE [None]
  - INTERNATIONAL NORMALISED RATIO DECREASED [None]
  - INTESTINAL ULCER [None]
  - PORTAL VEIN THROMBOSIS [None]
  - WEIGHT DECREASED [None]
